FAERS Safety Report 9386166 (Version 1)
Quarter: 2013Q3

REPORT INFORMATION
  Report Type: Spontaneous
  Country: US (occurrence: US)
  Receive Date: 20130707
  Receipt Date: 20130707
  Transmission Date: 20140515
  Serious: No
  Sender: FDA-Public Use
  Company Number: US-ALLERGAN-1307908US

PATIENT
  Age: 84 Year
  Sex: Male

DRUGS (4)
  1. LUMIGAN? 0.01% [Suspect]
     Indication: PRODUCT USED FOR UNKNOWN INDICATION
     Dosage: 2 GTT, QHS
     Route: 047
  2. AZOPT [Concomitant]
     Indication: PRODUCT USED FOR UNKNOWN INDICATION
  3. PILOCARPINE [Concomitant]
     Indication: PRODUCT USED FOR UNKNOWN INDICATION
  4. KLONOPIN [Concomitant]
     Indication: ANXIETY

REACTIONS (1)
  - Anxiety [Not Recovered/Not Resolved]
